FAERS Safety Report 9223095 (Version 8)
Quarter: 2016Q2

REPORT INFORMATION
  Report Type: Spontaneous
  Country: US (occurrence: US)
  Receive Date: 20130410
  Receipt Date: 20160406
  Transmission Date: 20160815
  Serious: No
  Sender: FDA-Public Use
  Company Number: US-009507513-1304USA004474

PATIENT
  Sex: Male
  Weight: 83.9 kg

DRUGS (2)
  1. PHENOBARBITAL. [Concomitant]
     Active Substance: PHENOBARBITAL
     Indication: EPILEPSY
     Dosage: UNK
     Dates: start: 1977
  2. PROPECIA [Suspect]
     Active Substance: FINASTERIDE
     Indication: ANDROGENETIC ALOPECIA
     Dosage: 1 MG, QD
     Route: 048
     Dates: start: 20030915, end: 201007

REACTIONS (14)
  - Hypertriglyceridaemia [Unknown]
  - Hypothyroidism [Recovered/Resolved]
  - Asthenospermia [Unknown]
  - Semen volume decreased [Unknown]
  - Cognitive disorder [Not Recovered/Not Resolved]
  - Basedow^s disease [Unknown]
  - Testicular atrophy [Unknown]
  - Sexual dysfunction [Not Recovered/Not Resolved]
  - Erectile dysfunction [Unknown]
  - Hyperlipidaemia [Unknown]
  - Testicular microlithiasis [Unknown]
  - Hypogonadism [Unknown]
  - Ejaculation failure [Unknown]
  - Libido decreased [Not Recovered/Not Resolved]

NARRATIVE: CASE EVENT DATE: 200309
